FAERS Safety Report 6925883-2 (Version None)
Quarter: 2010Q3

REPORT INFORMATION
  Report Type: 
  Country: None (occurrence: None)
  Receive Date: 20100810
  Receipt Date: 20100802
  Transmission Date: 20110219
  Serious: Yes (Hospitalization, Disabling)
  Sender: FDA-Public Use
  Company Number: 2010JP004001

PATIENT
  Age: 85 Year
  Sex: Male
  Weight: 55 kg

DRUGS (16)
  1. VESICARE [Suspect]
     Indication: HYPERTONIC BLADDER
     Dosage: 5 MG, ORAL, 5 MG, UID/QD, ORAL, 10 MG, ORAL
     Route: 048
     Dates: start: 20100625, end: 20100625
  2. VESICARE [Suspect]
     Indication: HYPERTONIC BLADDER
     Dosage: 5 MG, ORAL, 5 MG, UID/QD, ORAL, 10 MG, ORAL
     Route: 048
     Dates: start: 20100626, end: 20100626
  3. VESICARE [Suspect]
     Indication: HYPERTONIC BLADDER
     Dosage: 5 MG, ORAL, 5 MG, UID/QD, ORAL, 10 MG, ORAL
     Route: 048
     Dates: start: 20100627, end: 20100630
  4. FLUITRAN (TRICHLORMETHIAZIDE) [Concomitant]
  5. SLOW-K [Concomitant]
  6. BAYLOTENSIN (NITRENDIPINE) [Concomitant]
  7. TAMSULOSIN HCL [Concomitant]
  8. SARPOGRELATE (SARPOGRELATE) [Concomitant]
  9. SHAKUYAKUKANZOUTOU (HERBAL EXTRACT NOS) [Concomitant]
  10. BUP-4 (PORPIVERINE HYDROCHLORIDE) [Concomitant]
  11. PENIFOR (PROPIVERINE HYDROCHLORIDE) [Concomitant]
  12. PALNAC (TAMSULOSIN HYDROCHLORIDE) [Concomitant]
  13. BUPVERINE (PROPIVERINE HYDROCHLORIDE) [Concomitant]
  14. LAXOBERON (SODIUM PICOSULFATE) [Concomitant]
  15. HALCION [Concomitant]
  16. NEISAT (DIFLUCORTOLONE VALERATE, LIDOCAINE) [Concomitant]

REACTIONS (12)
  - BLOOD GLUCOSE INCREASED [None]
  - BLOOD PRESSURE INCREASED [None]
  - CEREBROVASCULAR ACCIDENT [None]
  - DECREASED APPETITE [None]
  - GENERAL PHYSICAL CONDITION ABNORMAL [None]
  - HEART RATE INCREASED [None]
  - HEMIPLEGIA [None]
  - HYPOGLYCAEMIC COMA [None]
  - INCORRECT DOSE ADMINISTERED [None]
  - LOSS OF CONSCIOUSNESS [None]
  - RESPIRATORY RATE INCREASED [None]
  - VOMITING [None]
